FAERS Safety Report 7601733-6 (Version None)
Quarter: 2011Q3

REPORT INFORMATION
  Report Type: 
  Country: None (occurrence: None)
  Receive Date: 20110711
  Receipt Date: 20110701
  Transmission Date: 20111222
  Serious: Yes (Hospitalization)
  Sender: FDA-Public Use
  Company Number: KR-ABBOTT-11P-090-0835881-00

PATIENT
  Sex: Female

DRUGS (6)
  1. CALCITRIOL [Concomitant]
     Indication: MINERAL SUPPLEMENTATION
     Route: 042
     Dates: start: 20060205, end: 20110502
  2. EPOKINE [Concomitant]
     Route: 042
     Dates: start: 20090807, end: 20091106
  3. EPOKINE [Concomitant]
     Route: 042
     Dates: start: 20091106, end: 20110602
  4. SEVELAMER HYDROCHLORIDE [Concomitant]
     Indication: HYPERPHOSPHATAEMIA
     Route: 048
     Dates: start: 20040520
  5. ZEMPLAR [Suspect]
     Indication: HYPERPARATHYROIDISM
     Route: 042
     Dates: start: 20071114
  6. EPOKINE [Concomitant]
     Indication: ANAEMIA
     Route: 042
     Dates: start: 20040817, end: 20090807

REACTIONS (3)
  - RENAL FAILURE CHRONIC [None]
  - INTERVERTEBRAL DISC PROTRUSION [None]
  - LUMBAR SPINAL STENOSIS [None]
